FAERS Safety Report 10899544 (Version 3)
Quarter: 2015Q3

REPORT INFORMATION
  Report Type: Report from Study
  Country: CA (occurrence: CA)
  Receive Date: 20150309
  Receipt Date: 20150714
  Transmission Date: 20151125
  Serious: Yes (Life-Threatening, Hospitalization, Other)
  Sender: FDA-Public Use
  Company Number: CA-ABBVIE-15P-028-1356439-00

PATIENT
  Sex: Male
  Weight: 65 kg

DRUGS (1)
  1. LUPRON DEPOT [Suspect]
     Active Substance: LEUPROLIDE ACETATE
     Indication: PROSTATE CANCER
     Route: 030
     Dates: start: 20130301, end: 20141104

REACTIONS (6)
  - Gastroenterostomy [Unknown]
  - Acute kidney injury [Recovering/Resolving]
  - General physical health deterioration [Unknown]
  - Nephrostomy [Unknown]
  - Laryngitis [Not Recovered/Not Resolved]
  - Terminal state [Not Recovered/Not Resolved]
